FAERS Safety Report 7455435-X (Version None)
Quarter: 2011Q2

REPORT INFORMATION
  Report Type: 
  Country: None (occurrence: None)
  Receive Date: 20110503
  Receipt Date: 20110427
  Transmission Date: 20111010
  Serious: Yes (Death)
  Sender: FDA-Public Use
  Company Number: FR-SANOFI-AVENTIS-2011SA026307

PATIENT
  Age: 73 Year
  Sex: Female

DRUGS (16)
  1. XANAX [Suspect]
     Indication: ANXIETY
     Route: 048
  2. NISISCO [Suspect]
     Route: 048
  3. TARDYFERON B(9) [Suspect]
     Route: 048
     Dates: start: 20110223
  4. ACETAMINOPHEN [Suspect]
     Indication: ARTHRALGIA
     Route: 048
     Dates: start: 20110224
  5. LOVENOX [Suspect]
     Route: 058
     Dates: start: 20110222, end: 20110222
  6. TOPALGIC [Suspect]
     Route: 048
     Dates: start: 20110225
  7. DABIGATRAN ETEXILATE [Suspect]
     Route: 048
     Dates: start: 20110223
  8. HYDERGINE [Suspect]
     Route: 048
  9. TOPALGIC [Suspect]
     Indication: ARTHRALGIA
     Route: 041
     Dates: start: 20110222, end: 20110223
  10. LASILIX RETARD [Suspect]
     Route: 048
  11. CELIPROLOL [Suspect]
     Route: 048
  12. EUPRESSYL [Suspect]
     Route: 048
  13. XYZAL [Suspect]
     Route: 048
  14. INIPOMP [Suspect]
     Route: 048
  15. ACETAMINOPHEN [Suspect]
     Indication: ARTHRALGIA
     Route: 041
     Dates: start: 20110222
  16. ART 50 [Suspect]
     Indication: ARTHRITIS
     Route: 048

REACTIONS (1)
  - SUDDEN DEATH [None]
